FAERS Safety Report 4913747-5 (Version None)
Quarter: 2006Q1

REPORT INFORMATION
  Report Type: 
  Country: None (occurrence: None)
  Receive Date: 20060216
  Receipt Date: 20060207
  Transmission Date: 20060701
  Serious: Yes (Hospitalization)
  Sender: FDA-Public Use
  Company Number: GB-GLAXOSMITHKLINE-B0409567A

PATIENT
  Age: 51 Year
  Sex: Female

DRUGS (17)
  1. IODINE I 131 TOSITUMOMAB [Suspect]
     Indication: NON-HODGKIN'S LYMPHOMA
     Route: 042
     Dates: start: 19980925, end: 19980925
  2. TOSITUMOMAB [Suspect]
     Indication: NON-HODGKIN'S LYMPHOMA
     Route: 042
     Dates: start: 19980925, end: 19980925
  3. IODINE I 131 TOSITUMOMAB [Suspect]
     Route: 042
     Dates: start: 19981002, end: 19981002
  4. TOSITUMOMAB [Suspect]
     Route: 042
     Dates: start: 19981002, end: 19981002
  5. RADIOTHERAPY [Suspect]
     Dates: start: 19950101
  6. OROMORPH [Concomitant]
  7. FENTANYL [Concomitant]
  8. AMINOPHYLLINE [Concomitant]
  9. DIAZEPAM [Concomitant]
  10. TEMAZEPAM [Concomitant]
  11. WARFARIN [Concomitant]
  12. TRAZODONE [Concomitant]
  13. LACTULOSE [Concomitant]
  14. RABEPRAZOLE SODIUM [Concomitant]
  15. LANSOPRAZOLE [Concomitant]
  16. LEVOMEPROMAZINE [Concomitant]
  17. ONDANSETRON [Concomitant]

REACTIONS (1)
  - RENAL FAILURE CHRONIC [None]
